FAERS Safety Report 21779217 (Version 3)
Quarter: 2023Q2

REPORT INFORMATION
  Report Type: Report from Study
  Country: FR (occurrence: FR)
  Receive Date: 20221226
  Receipt Date: 20230607
  Transmission Date: 20230722
  Serious: Yes (Hospitalization, Other)
  Sender: FDA-Public Use
  Company Number: FR-BAYER-2022A071072

PATIENT
  Age: 83 Year
  Sex: Male
  Weight: 72 kg

DRUGS (20)
  1. REGORAFENIB [Suspect]
     Active Substance: REGORAFENIB
     Indication: Hepatocellular carcinoma
     Dosage: 90 MG, QD
     Route: 048
     Dates: start: 20211221, end: 20211223
  2. REGORAFENIB [Suspect]
     Active Substance: REGORAFENIB
     Indication: Metastases to liver
     Dosage: 60 MG, QD
     Route: 048
     Dates: start: 20220201, end: 20220207
  3. REGORAFENIB [Suspect]
     Active Substance: REGORAFENIB
     Indication: Metastases to lung
     Dosage: 60 MG, QD
     Route: 048
     Dates: start: 20220215, end: 20220221
  4. REGORAFENIB [Suspect]
     Active Substance: REGORAFENIB
     Indication: Hepatocellular carcinoma
     Dosage: 60 MG, QD
     Route: 048
     Dates: start: 20220228, end: 20220228
  5. REGORAFENIB [Suspect]
     Active Substance: REGORAFENIB
     Indication: Hepatocellular carcinoma
     Dosage: 60 MG, QD
     Route: 048
     Dates: start: 20220301, end: 20220307
  6. REGORAFENIB [Suspect]
     Active Substance: REGORAFENIB
     Indication: Hepatocellular carcinoma
     Dosage: 60 MG, QD
     Route: 048
     Dates: start: 20220315, end: 20220404
  7. REGORAFENIB [Suspect]
     Active Substance: REGORAFENIB
     Indication: Hepatocellular carcinoma
     Dosage: 60 MG, QD
     Route: 048
     Dates: start: 20220412, end: 20220501
  8. REGORAFENIB [Suspect]
     Active Substance: REGORAFENIB
     Indication: Hepatocellular carcinoma
     Dosage: 60 MG, QD
     Route: 048
     Dates: start: 20220508, end: 20220508
  9. PEMBROLIZUMAB [Suspect]
     Active Substance: PEMBROLIZUMAB
     Indication: Hepatocellular carcinoma
     Dosage: 400 MG, Q3WK
     Route: 042
     Dates: start: 20211221, end: 20211221
  10. PEMBROLIZUMAB [Suspect]
     Active Substance: PEMBROLIZUMAB
     Indication: Metastases to liver
     Dosage: 400 MG, Q3WK
     Route: 042
     Dates: start: 20220201, end: 20220201
  11. PEMBROLIZUMAB [Suspect]
     Active Substance: PEMBROLIZUMAB
     Indication: Metastases to lung
     Dosage: 400 MG, Q3WK
     Route: 042
     Dates: start: 20220315, end: 20220315
  12. METFORMIN HYDROCHLORIDE\VILDAGLIPTIN [Concomitant]
     Active Substance: METFORMIN HYDROCHLORIDE\VILDAGLIPTIN
     Indication: Type 2 diabetes mellitus
     Dosage: 2 DF, QD
     Route: 048
     Dates: start: 201406
  13. ACETYLLEUCINE, L- [Concomitant]
     Active Substance: ACETYLLEUCINE, L-
     Indication: Dizziness
     Dosage: 1 DF, BID
     Route: 048
     Dates: start: 200006
  14. OMEPRAZOLE [Concomitant]
     Active Substance: OMEPRAZOLE
     Indication: Gastrooesophageal reflux disease
     Dosage: 1 DF, QD
     Route: 048
     Dates: start: 202106
  15. COVERAM [Concomitant]
     Active Substance: AMLODIPINE\PERINDOPRIL
     Indication: Hypertension
     Dosage: 1 DF, QD
     Route: 048
     Dates: start: 202104
  16. GLYCERIN\MINERAL OIL\PETROLATUM [Concomitant]
     Active Substance: GLYCERIN\MINERAL OIL\PETROLATUM
     Indication: Pruritus
     Dosage: 1 APPLICATION, QD
     Route: 003
     Dates: start: 20220315
  17. ANETHOLTRITHION [Concomitant]
     Active Substance: ANETHOLTRITHION
     Indication: Dry mouth
     Dosage: 2 TABLETS, TID
     Route: 048
     Dates: start: 20220412
  18. NERISONE [Concomitant]
     Active Substance: DIFLUCORTOLONE VALERATE
     Indication: Pruritus
     Dosage: 1 APPLICATION, QD
     Route: 003
     Dates: start: 20220315
  19. TOZINAMERAN [Concomitant]
     Active Substance: TOZINAMERAN
     Indication: Prophylaxis
     Dosage: 1 INJECTION
     Route: 030
     Dates: start: 202110, end: 202110
  20. TOZINAMERAN [Concomitant]
     Active Substance: TOZINAMERAN
     Indication: Prophylaxis
     Dosage: 1 INJECTION
     Route: 030
     Dates: start: 202204, end: 202204

REACTIONS (2)
  - Hepatic cytolysis [Not Recovered/Not Resolved]
  - Haematochezia [Recovered/Resolved]

NARRATIVE: CASE EVENT DATE: 20220506
